FAERS Safety Report 5271069-X (Version None)
Quarter: 2007Q1

REPORT INFORMATION
  Report Type: 
  Country: None (occurrence: None)
  Receive Date: 20070321
  Receipt Date: 20070316
  Transmission Date: 20070707
  Serious: Yes (Other)
  Sender: FDA-Public Use
  Company Number: US-GLAXOSMITHKLINE-A0643802A

PATIENT
  Age: 35 Year
  Sex: Female

DRUGS (9)
  1. IMITREX [Suspect]
     Dosage: 100MG PER DAY
  2. IMITREX [Suspect]
     Indication: MIGRAINE
     Dosage: 6MG PER DAY
     Route: 058
  3. PROPRANOLOL [Concomitant]
     Dosage: 20MG TWICE PER DAY
  4. PHYSICAL THERAPY [Concomitant]
     Indication: MIGRAINE
  5. ACUPUNCTURE [Concomitant]
     Indication: MIGRAINE
  6. RIBOFLAVIN [Concomitant]
     Indication: MIGRAINE
  7. MAGNESIUM [Concomitant]
     Indication: MIGRAINE
  8. OXYCODONE HCL [Concomitant]
  9. ASPIRIN [Concomitant]

REACTIONS (2)
  - NORMAL DELIVERY [None]
  - VAGINAL HAEMORRHAGE [None]
